FAERS Safety Report 9441536 (Version 2)
Quarter: 2013Q3

REPORT INFORMATION
  Report Type: Report from Study
  Country: DE (occurrence: DE)
  Receive Date: 20130805
  Receipt Date: 20130816
  Transmission Date: 20140515
  Serious: Yes (Other)
  Sender: FDA-Public Use
  Company Number: DE-ABBOTT-13P-062-1129586-00

PATIENT
  Age: 71 Year
  Sex: Male

DRUGS (2)
  1. TRENANTONE [Suspect]
     Indication: PROSTATE CANCER
     Route: 058
     Dates: start: 20130113
  2. TRENANTONE [Suspect]
     Indication: NEOADJUVANT THERAPY

REACTIONS (1)
  - Hypopharyngeal cancer [Unknown]
